FAERS Safety Report 5774342-1 (Version None)
Quarter: 2008Q2

REPORT INFORMATION
  Report Type: 
  Country: None (occurrence: None)
  Receive Date: 20080616
  Receipt Date: 20080609
  Transmission Date: 20081010
  Serious: Yes (Other)
  Sender: FDA-Public Use
  Company Number: PHEH2008US05236

PATIENT

DRUGS (1)
  1. DIOVAN [Suspect]
     Dosage: UNK, UNK

REACTIONS (1)
  - CUTANEOUS LUPUS ERYTHEMATOSUS [None]
